FAERS Safety Report 23705908 (Version 1)
Quarter: 2024Q2

REPORT INFORMATION
  Report Type: Spontaneous
  Country: US (occurrence: None)
  Receive Date: 20240403
  Receipt Date: 20240403
  Transmission Date: 20240715
  Serious: Yes (Death, Life-Threatening, Hospitalization)
  Sender: FDA-Public Use
  Company Number: None

PATIENT
  Age: 18 Year
  Sex: Male
  Weight: 107 kg

DRUGS (21)
  1. ASPARLAS [Suspect]
     Active Substance: CALASPARGASE PEGOL-MKNL
     Indication: Acute lymphocytic leukaemia
     Dosage: 3750 IU INTERNATIONAL UNITS PER PROTOCOL INTRAVENOUS BOLUS
     Route: 040
     Dates: start: 20230103, end: 20240311
  2. DEFITELIO [Suspect]
     Active Substance: DEFIBROTIDE SODIUM
     Indication: Sickle cell anaemia with crisis
     Dosage: 600 MG EVERY 6 HOURS INTRAVENOUS BOLUS?
     Route: 040
     Dates: start: 20240130, end: 20240205
  3. DEFITELIO [Suspect]
     Active Substance: DEFIBROTIDE SODIUM
     Indication: Venoocclusive liver disease
  4. CEFEPIME [Concomitant]
     Active Substance: CEFEPIME HYDROCHLORIDE
  5. URSODIOL [Concomitant]
     Active Substance: URSODIOL
  6. FENOFIBRATE [Concomitant]
     Active Substance: FENOFIBRATE
  7. EMEND [Concomitant]
     Active Substance: APREPITANT
  8. FLAGYL [Concomitant]
     Active Substance: METRONIDAZOLE\METRONIDAZOLE HYDROCHLORIDE
  9. MEROPENEM [Concomitant]
     Active Substance: MEROPENEM
  10. ZOSYN [Concomitant]
     Active Substance: PIPERACILLIN SODIUM\TAZOBACTAM SODIUM
  11. DEFIBROTIDE [Concomitant]
     Active Substance: DEFIBROTIDE (BOVINE)
  12. ALBUMIN HUMAN [Concomitant]
     Active Substance: ALBUMIN HUMAN
  13. MEPHYTON [Concomitant]
     Active Substance: PHYTONADIONE
  14. PROTONIX [Concomitant]
     Active Substance: PANTOPRAZOLE SODIUM
  15. Factor 7 recombinant [Concomitant]
  16. TRANEXAMIC ACID [Concomitant]
     Active Substance: TRANEXAMIC ACID
  17. ANTITHROMBIN III HUMAN [Concomitant]
     Active Substance: ANTITHROMBIN III HUMAN
  18. AMPHOTERICIN B [Concomitant]
     Active Substance: AMPHOTERICIN B
  19. VANCOMYCIN [Concomitant]
     Active Substance: VANCOMYCIN
  20. ACETYLCYSTEINE [Concomitant]
     Active Substance: ACETYLCYSTEINE
  21. MICAFUNGIN [Concomitant]
     Active Substance: MICAFUNGIN SODIUM

REACTIONS (2)
  - Gastrointestinal haemorrhage [None]
  - Therapy interrupted [None]

NARRATIVE: CASE EVENT DATE: 20240130
